FAERS Safety Report 20905208 (Version 1)
Quarter: 2022Q2

REPORT INFORMATION
  Report Type: Report from Study
  Country: JP (occurrence: JP)
  Receive Date: 20220602
  Receipt Date: 20220602
  Transmission Date: 20220721
  Serious: Yes (Hospitalization)
  Sender: FDA-Public Use
  Company Number: JP-ALNYLAM PHARMACEUTICALS, INC.-ALN-2020-001352

PATIENT

DRUGS (47)
  1. ONPATTRO [Suspect]
     Active Substance: PATISIRAN SODIUM
     Indication: Hereditary neuropathic amyloidosis
     Dosage: 23.7 MILLIGRAM
     Route: 041
     Dates: start: 20191128, end: 20191219
  2. ONPATTRO [Suspect]
     Active Substance: PATISIRAN SODIUM
     Dosage: 23.4 MILLIGRAM
     Route: 041
     Dates: start: 20200115, end: 20200115
  3. ONPATTRO [Suspect]
     Active Substance: PATISIRAN SODIUM
     Dosage: 24.4 MILLIGRAM
     Route: 041
     Dates: start: 20200205, end: 20200205
  4. ONPATTRO [Suspect]
     Active Substance: PATISIRAN SODIUM
     Dosage: 24.7 MILLIGRAM
     Route: 041
     Dates: start: 20200226, end: 20200226
  5. ONPATTRO [Suspect]
     Active Substance: PATISIRAN SODIUM
     Dosage: 25.2 MILLIGRAM
     Route: 041
     Dates: start: 20200318, end: 20210729
  6. GASTER [Concomitant]
     Active Substance: FAMOTIDINE
     Indication: Prophylaxis
     Dosage: 20 MILLIGRAM, SINGLE
     Route: 065
     Dates: start: 20191128, end: 20191219
  7. FAMOTIDINE [Concomitant]
     Active Substance: FAMOTIDINE
     Indication: Prophylaxis
     Dosage: 20 MILLIGRAM, SINGLE
     Route: 065
     Dates: start: 20200115
  8. POLARAMINE [Concomitant]
     Active Substance: DEXCHLORPHENIRAMINE MALEATE
     Indication: Prophylaxis
     Dosage: 5 MILLIGRAM, SINGLE
     Route: 065
     Dates: start: 20191128, end: 20191219
  9. POLARAMINE [Concomitant]
     Active Substance: DEXCHLORPHENIRAMINE MALEATE
     Dosage: 5 MILLIGRAM, SINGLE
     Route: 065
     Dates: start: 20200115
  10. DEXAMETHASONE SODIUM PHOSPHATE [Concomitant]
     Active Substance: DEXAMETHASONE SODIUM PHOSPHATE
     Indication: Prophylaxis
     Dosage: 10 MILLIGRAM, SINGLE
     Route: 065
     Dates: start: 20191128, end: 20191219
  11. DEXAMETHASONE SODIUM PHOSPHATE [Concomitant]
     Active Substance: DEXAMETHASONE SODIUM PHOSPHATE
     Dosage: 6.6 MILLIGRAM, SINGLE
     Route: 065
     Dates: start: 20200115
  12. DEXAMETHASONE SODIUM PHOSPHATE [Concomitant]
     Active Substance: DEXAMETHASONE SODIUM PHOSPHATE
     Dosage: 3.3 MILLIGRAM, SINGLE
     Route: 065
     Dates: start: 20200115
  13. DEXAMETHASONE SODIUM PHOSPHATE [Concomitant]
     Active Substance: DEXAMETHASONE SODIUM PHOSPHATE
     Dosage: 9.9 MILLIGRAM, SINGLE
     Route: 065
  14. ACETAMINOPHEN [Concomitant]
     Active Substance: ACETAMINOPHEN
     Indication: Prophylaxis
     Dosage: 500 MILLIGRAM, SINGLE
     Route: 065
     Dates: start: 20191128, end: 20191219
  15. CALONAL [Concomitant]
     Active Substance: ACETAMINOPHEN
     Indication: Prophylaxis
     Dosage: 500 MILLIGRAM, SINGLE
     Route: 048
     Dates: start: 20200115
  16. SODIUM CHLORIDE [Concomitant]
     Active Substance: SODIUM CHLORIDE
     Indication: Prophylaxis
     Dosage: 100 MILLILITER, SINGLE
     Route: 065
     Dates: start: 20200115
  17. SODIUM CHLORIDE [Concomitant]
     Active Substance: SODIUM CHLORIDE
     Indication: Premedication
  18. VITAMINS [Concomitant]
     Active Substance: VITAMINS
     Indication: Prophylaxis
     Dosage: 1 GRAM, QD
     Route: 048
     Dates: start: 20191128
  19. VITAMINS [Concomitant]
     Active Substance: VITAMINS
     Dosage: 1 GRAM, QD
     Route: 048
     Dates: start: 20200115
  20. LYRICA [Concomitant]
     Active Substance: PREGABALIN
     Indication: Hereditary neuropathic amyloidosis
     Dosage: 2 DOSAGE FORM, BID
     Route: 048
  21. HERBALS [Concomitant]
     Active Substance: HERBALS
     Indication: Hereditary neuropathic amyloidosis
     Dosage: 1 PACKAGE, BID
     Route: 048
  22. HERBALS [Concomitant]
     Active Substance: HERBALS
     Dosage: 2.5 GRAM
     Route: 048
  23. HERBALS [Concomitant]
     Active Substance: HERBALS
     Indication: Hereditary neuropathic amyloidosis
     Dosage: UNK UNK, BID
     Route: 048
  24. HERBALS [Concomitant]
     Active Substance: HERBALS
     Dosage: 2.5 GRAM, BID
     Route: 048
  25. CILOSTAZOL [Concomitant]
     Active Substance: CILOSTAZOL
     Indication: Cerebral infarction
     Dosage: 1 DOSAGE FORM, BID
     Route: 048
  26. MIDODRINE HYDROCHLORIDE [Concomitant]
     Active Substance: MIDODRINE HYDROCHLORIDE
     Indication: Hereditary neuropathic amyloidosis
     Dosage: 1 DOSAGE FORM, BID
     Route: 048
  27. MIDODRINE HYDROCHLORIDE [Concomitant]
     Active Substance: MIDODRINE HYDROCHLORIDE
     Dosage: 2 MILLIGRAM, BID
     Route: 048
  28. SENNOSIDES [Concomitant]
     Active Substance: SENNOSIDES
     Indication: Hereditary neuropathic amyloidosis
     Dosage: 1 DOSAGE FORM, QD
     Route: 048
  29. SENNOSIDES [Concomitant]
     Active Substance: SENNOSIDES
     Dosage: 12 MILLIGRAM, QD
     Route: 048
     Dates: end: 20200204
  30. SENNOSIDES [Concomitant]
     Active Substance: SENNOSIDES
     Dosage: 24 MILLIGRAM, QD
     Route: 048
     Dates: start: 20200205
  31. LUNESTA [Concomitant]
     Active Substance: ESZOPICLONE
     Indication: Hereditary neuropathic amyloidosis
     Dosage: 2 MILLIGRAM, QD
     Route: 048
  32. LUNESTA [Concomitant]
     Active Substance: ESZOPICLONE
     Indication: Insomnia
     Dosage: 1 MILLIGRAM, QD
     Route: 048
  33. LUNESTA [Concomitant]
     Active Substance: ESZOPICLONE
     Dosage: 3 MILLIGRAM, QD
     Route: 048
  34. BELSOMRA [Concomitant]
     Active Substance: SUVOREXANT
     Indication: Hereditary neuropathic amyloidosis
     Dosage: 1 DOSAGE FORM, QD
     Route: 048
  35. NAFTOPIDIL [Concomitant]
     Active Substance: NAFTOPIDIL
     Indication: Hereditary neuropathic amyloidosis
     Dosage: 1 DOSAGE FORM, QD
     Route: 048
  36. URAPIDIL [Concomitant]
     Active Substance: URAPIDIL
     Indication: Hereditary neuropathic amyloidosis
     Dosage: 15 MILLIGRAM, BID
     Route: 048
     Dates: end: 20200319
  37. METHYLCOBALAMIN [Concomitant]
     Active Substance: METHYLCOBALAMIN
     Indication: Hereditary neuropathic amyloidosis
     Dosage: 500 MICROGRAM, TID
     Route: 048
  38. FOLIC ACID [Concomitant]
     Active Substance: FOLIC ACID
     Indication: Folate deficiency
     Dosage: 5 MILLIGRAM, BID
     Route: 048
  39. ENALAPRIL MALEATE [Concomitant]
     Active Substance: ENALAPRIL MALEATE
     Indication: Hereditary neuropathic amyloidosis
     Dosage: 5 MILLIGRAM, QD
     Route: 048
     Dates: end: 20200115
  40. BISOPROLOL FUMARATE [Concomitant]
     Active Substance: BISOPROLOL FUMARATE
     Indication: Hereditary neuropathic amyloidosis
     Dosage: 2.5 MILLIGRAM, QD
     Route: 048
     Dates: end: 20200115
  41. LYRICA [Concomitant]
     Active Substance: PREGABALIN
     Indication: Hereditary neuropathic amyloidosis
     Dosage: 150 MILLIGRAM, BID
     Route: 048
  42. CILOSTAZOL [Concomitant]
     Active Substance: CILOSTAZOL
     Indication: Hereditary neuropathic amyloidosis
     Dosage: 100 MILLIGRAM, BID
     Route: 065
  43. ROZEREM [Concomitant]
     Active Substance: RAMELTEON
     Indication: Insomnia
     Dosage: 8 MILLIGRAM, QD
     Route: 048
     Dates: end: 20200204
  44. AMITIZA [Concomitant]
     Active Substance: LUBIPROSTONE
     Indication: Hereditary neuropathic amyloidosis
     Dosage: 24 MICROGRAM, BID
     Route: 065
     Dates: start: 20200430, end: 20210113
  45. BELSOMRA [Concomitant]
     Active Substance: SUVOREXANT
     Indication: Insomnia
     Dosage: 20 MILLIGRAM, QD
     Route: 065
     Dates: start: 20200205
  46. CILOSTAZOL [Concomitant]
     Active Substance: CILOSTAZOL
     Indication: Hereditary neuropathic amyloidosis
     Dosage: 100 MILLIGRAM, BID
     Route: 065
  47. AMITIZA [Concomitant]
     Active Substance: LUBIPROSTONE
     Indication: Hereditary neuropathic amyloidosis
     Dosage: 12 MICROGRAM, BID
     Route: 048
     Dates: start: 20200527

REACTIONS (14)
  - Vitrectomy [Unknown]
  - Glaucoma surgery [Unknown]
  - Dizziness [Unknown]
  - Hypotension [Recovering/Resolving]
  - Inappropriate schedule of product administration [Unknown]
  - Inappropriate schedule of product administration [Unknown]
  - Inappropriate schedule of product administration [Unknown]
  - Inappropriate schedule of product administration [Unknown]
  - Inappropriate schedule of product administration [Unknown]
  - Inappropriate schedule of product administration [Unknown]
  - Inappropriate schedule of product administration [Unknown]
  - Inappropriate schedule of product administration [Unknown]
  - Inappropriate schedule of product administration [Unknown]
  - Inappropriate schedule of product administration [Unknown]

NARRATIVE: CASE EVENT DATE: 20200115
